FAERS Safety Report 22768740 (Version 5)
Quarter: 2023Q4

REPORT INFORMATION
  Report Type: Spontaneous
  Country: US (occurrence: US)
  Receive Date: 20230731
  Receipt Date: 20231018
  Transmission Date: 20240110
  Serious: No
  Sender: FDA-Public Use
  Company Number: US-PFIZER INC-PV202300130397

PATIENT
  Age: 71 Year
  Sex: Male

DRUGS (2)
  1. RETACRIT [Suspect]
     Active Substance: EPOETIN ALFA-EPBX
     Indication: Nephrogenic anaemia
     Dosage: 20000 IU (EVERY 14 DAYS)
     Route: 058
  2. RETACRIT [Suspect]
     Active Substance: EPOETIN ALFA-EPBX
     Dosage: 10000 IU
     Dates: start: 20230918

REACTIONS (2)
  - Off label use [Unknown]
  - Movement disorder [Unknown]
